FAERS Safety Report 4295714-0 (Version None)
Quarter: 2004Q1

REPORT INFORMATION
  Report Type: 
  Country: None (occurrence: None)
  Receive Date: 20040216
  Receipt Date: 20031014
  Transmission Date: 20041129
  Serious: Yes (Life-Threatening, Hospitalization, Other)
  Sender: FDA-Public Use
  Company Number: US-GLAXOSMITHKLINE-A0430466A

PATIENT
  Age: 15 Year
  Sex: Female

DRUGS (3)
  1. LAMICTAL [Suspect]
     Indication: BIPOLAR DISORDER
     Dosage: 25MG PER DAY
     Route: 048
     Dates: start: 20031001, end: 20031014
  2. LITHIUM CARBONATE [Concomitant]
     Dosage: 600MG PER DAY
     Route: 048
  3. EFFEXOR [Concomitant]
     Route: 048

REACTIONS (2)
  - HEADACHE [None]
  - STEVENS-JOHNSON SYNDROME [None]
